FAERS Safety Report 8888795 (Version 2)
Quarter: 2012Q4

REPORT INFORMATION
  Report Type: 
  Country: JP (occurrence: JP)
  Receive Date: 20121106
  Receipt Date: 20121130
  Transmission Date: 20130627
  Serious: Yes (Other)
  Sender: FDA-Public Use
  Company Number: JP-JNJFOC-20121102423

PATIENT
  Age: 65 Year
  Sex: Male

DRUGS (8)
  1. XARELTO [Suspect]
     Indication: ATRIAL FIBRILLATION
     Route: 048
     Dates: start: 20120615, end: 20121025
  2. XARELTO [Suspect]
     Indication: CEREBROVASCULAR ACCIDENT PROPHYLAXIS
     Route: 048
     Dates: start: 20120615, end: 20121025
  3. DIOVAN [Concomitant]
     Route: 048
  4. GASLON N [Concomitant]
     Indication: GASTRIC MUCOSAL LESION
     Route: 048
     Dates: start: 20120713
  5. LIVALO [Concomitant]
     Route: 048
     Dates: start: 20120615
  6. MAINTATE [Concomitant]
     Route: 048
     Dates: start: 20120615
  7. AVAPRO [Concomitant]
     Route: 048
     Dates: start: 20120713, end: 20120802
  8. EXFORGE [Concomitant]
     Route: 048
     Dates: start: 20120803

REACTIONS (1)
  - Gastrointestinal haemorrhage [Recovering/Resolving]
